FAERS Safety Report 24410169 (Version 4)
Quarter: 2025Q1

REPORT INFORMATION
  Report Type: Report from Study
  Country: IN (occurrence: IN)
  Receive Date: 20241008
  Receipt Date: 20250207
  Transmission Date: 20250409
  Serious: Yes (Other)
  Sender: ROCHE
  Company Number: IN-ROCHE-10000022234

PATIENT
  Age: 71 Year
  Sex: Male

DRUGS (2)
  1. TECENTRIQ [Suspect]
     Active Substance: ATEZOLIZUMAB
     Indication: Hepatocellular carcinoma
     Dosage: 12TH CYCLE INTERVAL- 22ND DAY
     Route: 042
     Dates: start: 20240506
  2. TECENTRIQ [Suspect]
     Active Substance: ATEZOLIZUMAB
     Route: 042

REACTIONS (5)
  - Off label use [Unknown]
  - Hepatocellular carcinoma [Unknown]
  - Neoplasm [Unknown]
  - Arterial disorder [Unknown]
  - Dental operation [Unknown]
